FAERS Safety Report 23887110 (Version 1)
Quarter: 2024Q2

REPORT INFORMATION
  Report Type: Spontaneous
  Country: US (occurrence: US)
  Receive Date: 20240523
  Receipt Date: 20240523
  Transmission Date: 20240716
  Serious: No
  Sender: FDA-Public Use
  Company Number: US-OPELLA-2024OHG017400

PATIENT
  Age: 72 Year
  Sex: Female

DRUGS (1)
  1. ALLEGRA ALLERGY [Suspect]
     Active Substance: FEXOFENADINE HYDROCHLORIDE
     Indication: Allergy to arthropod bite
     Route: 065

REACTIONS (3)
  - Heart rate increased [Unknown]
  - Blood pressure increased [Unknown]
  - Product prescribing error [Unknown]
